FAERS Safety Report 8072257-X (Version None)
Quarter: 2012Q1

REPORT INFORMATION
  Report Type: 
  Country: None (occurrence: None)
  Receive Date: 20120126
  Receipt Date: 20120119
  Transmission Date: 20120608
  Serious: Yes (Hospitalization)
  Sender: FDA-Public Use
  Company Number: US-PFIZER INC-2012015547

PATIENT
  Sex: Female
  Weight: 61.224 kg

DRUGS (1)
  1. SUTENT [Suspect]
     Indication: NEOPLASM MALIGNANT
     Dosage: 25 MG, ALTERNATE DAY
     Route: 048

REACTIONS (4)
  - DRY SKIN [None]
  - DYSPNOEA [None]
  - DIARRHOEA [None]
  - HYPERTENSION [None]
